FAERS Safety Report 9017041 (Version 2)
Quarter: 2013Q2

REPORT INFORMATION
  Report Type: Report from Study
  Country: AU (occurrence: AU)
  Receive Date: 20130117
  Receipt Date: 20130513
  Transmission Date: 20140414
  Serious: Yes (Other)
  Sender: FDA-Public Use
  Company Number: PHHY2013AU004085

PATIENT
  Age: 80 Year
  Sex: Male
  Weight: 69 kg

DRUGS (7)
  1. ACLASTA [Suspect]
     Dosage: 5 MG, UNK
     Route: 042
     Dates: start: 20120118
  2. ATROVENT NEBULES [Concomitant]
     Indication: CHRONIC OBSTRUCTIVE PULMONARY DISEASE
     Dosage: UNK
     Dates: start: 2010
  3. CALTRATE [Concomitant]
     Indication: OSTEOPOROSIS
     Dosage: UNK DAILY
     Route: 048
     Dates: start: 2010
  4. CARDIZEM [Concomitant]
     Indication: ATRIAL FIBRILLATION
     Dosage: UNK DAILY
     Route: 048
     Dates: start: 2010
  5. COPLAVIX [Concomitant]
     Indication: ATRIAL FIBRILLATION
     Dosage: UNK DAILY
     Route: 048
     Dates: start: 2010
  6. FLOMAXTRA [Concomitant]
     Indication: BENIGN PROSTATIC HYPERPLASIA
     Dosage: UKN, DAILY
     Route: 048
     Dates: start: 2010
  7. SPIRIVA [Concomitant]
     Indication: CHRONIC OBSTRUCTIVE PULMONARY DISEASE
     Dosage: UKN, DAILY
     Route: 048
     Dates: start: 2010

REACTIONS (1)
  - Lower respiratory tract infection [Recovered/Resolved]
